FAERS Safety Report 7455644-X (Version None)
Quarter: 2011Q2

REPORT INFORMATION
  Report Type: 
  Country: None (occurrence: None)
  Receive Date: 20110503
  Receipt Date: 20110425
  Transmission Date: 20111010
  Serious: Yes (Hospitalization)
  Sender: FDA-Public Use
  Company Number: CR-GENZYME-RENA-1001170

PATIENT

DRUGS (4)
  1. FLUCONAZOLE [Concomitant]
     Indication: PRODUCT USED FOR UNKNOWN INDICATION
  2. CIMETIDINE [Concomitant]
     Indication: PRODUCT USED FOR UNKNOWN INDICATION
  3. AMLODIPINE [Concomitant]
     Indication: PRODUCT USED FOR UNKNOWN INDICATION
  4. RENVELA [Suspect]
     Indication: HYPERPHOSPHATAEMIA
     Dosage: 4.8 G, QD
     Route: 048
     Dates: start: 20110316, end: 20110406

REACTIONS (6)
  - ANAEMIA [None]
  - PSEUDOMONAS TEST POSITIVE [None]
  - DECREASED APPETITE [None]
  - PYREXIA [None]
  - MALAISE [None]
  - ABDOMINAL PAIN UPPER [None]
